FAERS Safety Report 9541147 (Version 3)
Quarter: 2013Q4

REPORT INFORMATION
  Report Type: Spontaneous
  Country: US (occurrence: US)
  Receive Date: 20130923
  Receipt Date: 20131119
  Transmission Date: 20140711
  Serious: No
  Sender: FDA-Public Use
  Company Number: US-BIOGENIDEC-2013BI067587

PATIENT
  Age: 42 Year
  Sex: Female

DRUGS (5)
  1. AVONEX [Suspect]
     Indication: MULTIPLE SCLEROSIS
     Route: 030
     Dates: start: 20130110
  2. AVONEX [Suspect]
     Indication: MULTIPLE SCLEROSIS
     Route: 030
     Dates: start: 20130305
  3. EPI PEN [Concomitant]
     Indication: HYPERSENSITIVITY
     Dates: start: 2013
  4. LOTEMAX [Concomitant]
     Indication: DRY EYE
     Dates: start: 2013, end: 2013
  5. BACLOFEN [Concomitant]
     Indication: PRODUCT USED FOR UNKNOWN INDICATION

REACTIONS (31)
  - Herpes zoster [Recovered/Resolved]
  - Psoriasis [Not Recovered/Not Resolved]
  - Piloerection [Not Recovered/Not Resolved]
  - Aphasia [Unknown]
  - Amnesia [Unknown]
  - Immune system disorder [Not Recovered/Not Resolved]
  - Food allergy [Not Recovered/Not Resolved]
  - Odynophagia [Not Recovered/Not Resolved]
  - Speech disorder [Not Recovered/Not Resolved]
  - Dysphagia [Not Recovered/Not Resolved]
  - Memory impairment [Not Recovered/Not Resolved]
  - Gastrointestinal disorder [Recovered/Resolved]
  - Hepatic enzyme abnormal [Recovered/Resolved]
  - Pharyngeal disorder [Recovered/Resolved]
  - General symptom [Not Recovered/Not Resolved]
  - Abnormal loss of weight [Not Recovered/Not Resolved]
  - Gait disturbance [Not Recovered/Not Resolved]
  - Dysphemia [Recovered/Resolved]
  - Hallucination [Recovered/Resolved]
  - Central nervous system lesion [Unknown]
  - Injection site swelling [Not Recovered/Not Resolved]
  - Asthma [Not Recovered/Not Resolved]
  - Nuclear magnetic resonance imaging [Not Recovered/Not Resolved]
  - Confusional state [Unknown]
  - Headache [Not Recovered/Not Resolved]
  - Rash papular [Not Recovered/Not Resolved]
  - Rhinorrhoea [Not Recovered/Not Resolved]
  - Dyspnoea [Recovered/Resolved]
  - Arrhythmia [Recovered/Resolved]
  - Influenza like illness [Recovered/Resolved]
  - Drug hypersensitivity [Not Recovered/Not Resolved]
